FAERS Safety Report 12540291 (Version 1)
Quarter: 2016Q3

REPORT INFORMATION
  Report Type: Spontaneous
  Country: US (occurrence: US)
  Receive Date: 20160708
  Receipt Date: 20160708
  Transmission Date: 20161109
  Serious: Yes (Hospitalization)
  Sender: FDA-Public Use
  Company Number: US-DSJP-DSU-2015-121208

PATIENT
  Age: 33 Year
  Sex: Female
  Weight: 65.76 kg

DRUGS (3)
  1. BENICAR HCT [Suspect]
     Active Substance: HYDROCHLOROTHIAZIDE\OLMESARTAN MEDOXOMIL
     Dosage: 40/12.5 PER DAY
     Dates: start: 200701, end: 200702
  2. BENICAR HCT [Suspect]
     Active Substance: HYDROCHLOROTHIAZIDE\OLMESARTAN MEDOXOMIL
     Indication: HYPERTENSION
     Dosage: 40/12.5 PER DAY
     Dates: start: 200411, end: 200604
  3. BENICAR HCT [Suspect]
     Active Substance: HYDROCHLOROTHIAZIDE\OLMESARTAN MEDOXOMIL
     Dosage: 40/12.5 PER DAY
     Dates: start: 20070625, end: 20070828

REACTIONS (8)
  - Haemorrhoids [Unknown]
  - Coeliac disease [Unknown]
  - Dizziness [Recovering/Resolving]
  - Malabsorption [Unknown]
  - Constipation [Unknown]
  - Polyp [Recovered/Resolved]
  - Renal failure [Unknown]
  - Anal fissure [Unknown]

NARRATIVE: CASE EVENT DATE: 20060309
